FAERS Safety Report 25497459 (Version 1)
Quarter: 2025Q3

REPORT INFORMATION
  Report Type: Report from Study
  Country: CA (occurrence: CA)
  Receive Date: 20250701
  Receipt Date: 20250701
  Transmission Date: 20251021
  Serious: Yes (Hospitalization, Other)
  Sender: ASTELLAS
  Company Number: CA-SEATTLE GENETICS-2022SGN06454

PATIENT
  Age: 84 Year
  Sex: Male
  Weight: 64 kg

DRUGS (8)
  1. ENFORTUMAB VEDOTIN-EJFV [Suspect]
     Active Substance: ENFORTUMAB VEDOTIN-EJFV
     Indication: Transitional cell carcinoma
     Route: 065
  2. ENFORTUMAB VEDOTIN-EJFV [Suspect]
     Active Substance: ENFORTUMAB VEDOTIN-EJFV
     Route: 065
  3. ENFORTUMAB VEDOTIN-EJFV [Suspect]
     Active Substance: ENFORTUMAB VEDOTIN-EJFV
     Route: 065
  4. ENFORTUMAB VEDOTIN-EJFV [Suspect]
     Active Substance: ENFORTUMAB VEDOTIN-EJFV
     Route: 065
  5. ENFORTUMAB VEDOTIN-EJFV [Suspect]
     Active Substance: ENFORTUMAB VEDOTIN-EJFV
     Route: 065
  6. ENFORTUMAB VEDOTIN-EJFV [Suspect]
     Active Substance: ENFORTUMAB VEDOTIN-EJFV
     Route: 065
  7. ENFORTUMAB VEDOTIN-EJFV [Suspect]
     Active Substance: ENFORTUMAB VEDOTIN-EJFV
     Route: 065
     Dates: start: 20221130
  8. ENFORTUMAB VEDOTIN-EJFV [Suspect]
     Active Substance: ENFORTUMAB VEDOTIN-EJFV
     Route: 065
     Dates: start: 20220629

REACTIONS (30)
  - Neuropathy peripheral [Not Recovered/Not Resolved]
  - Lower respiratory tract infection [Unknown]
  - Dysphagia [Unknown]
  - Decreased appetite [Unknown]
  - Somnolence [Unknown]
  - Anxiety [Unknown]
  - Appetite disorder [Not Recovered/Not Resolved]
  - Dry mouth [Unknown]
  - Sleep disorder [Unknown]
  - Productive cough [Recovering/Resolving]
  - Sputum discoloured [Unknown]
  - Skin laceration [Recovered/Resolved]
  - Localised infection [Recovered/Resolved]
  - Malaise [Unknown]
  - Dyspnoea [Unknown]
  - Chest pain [Unknown]
  - Cough [Unknown]
  - Memory impairment [Unknown]
  - Disturbance in attention [Unknown]
  - Weight decreased [Unknown]
  - Fatigue [Unknown]
  - Nausea [Unknown]
  - Lung neoplasm [Unknown]
  - Mucosal inflammation [Unknown]
  - Balance disorder [Recovering/Resolving]
  - Vision blurred [Not Recovered/Not Resolved]
  - Dry eye [Unknown]
  - Conjunctivitis [Unknown]
  - Asthenia [Unknown]
  - Stomatitis [Unknown]

NARRATIVE: CASE EVENT DATE: 20220101
